FAERS Safety Report 9822931 (Version 4)
Quarter: 2014Q2

REPORT INFORMATION
  Report Type: Spontaneous
  Country: HU (occurrence: HU)
  Receive Date: 20140116
  Receipt Date: 20140401
  Transmission Date: 20141212
  Serious: Yes (Death, Life-Threatening, Hospitalization)
  Sender: FDA-Public Use
  Company Number: US-ASTRAZENECA-2014SE02603

PATIENT
  Age: 4 Month
  Sex: Male

DRUGS (1)
  1. SYNAGIS [Suspect]
     Indication: ANTIVIRAL PROPHYLAXIS
     Dosage: SYNAGIS DOSE WAS GIVEN BASED ON BODY WEIGHT, MONTHLY
     Route: 030
     Dates: start: 20131126

REACTIONS (6)
  - Infection [Fatal]
  - Renal failure [Fatal]
  - Respiratory failure [Fatal]
  - Cardiac arrest [Recovered/Resolved]
  - Dyspnoea [Unknown]
  - Cyanosis [Unknown]
